FAERS Safety Report 7967580-0 (Version None)
Quarter: 2011Q4

REPORT INFORMATION
  Report Type: 
  Country: None (occurrence: None)
  Receive Date: 20111122
  Receipt Date: 20110726
  Transmission Date: 20120403
  Serious: No
  Sender: FDA-Public Use
  Company Number: PHHY2011US61949

PATIENT
  Age: 36 Year
  Sex: Male

DRUGS (2)
  1. GILENYA [Suspect]
     Dosage: 0.5 MG, QD, ORAL
     Route: 048
     Dates: start: 20110707, end: 20110714
  2. BACTRIM [Concomitant]

REACTIONS (5)
  - RASH [None]
  - ERYTHEMA [None]
  - BURNING SENSATION [None]
  - PARAESTHESIA [None]
  - PAIN [None]
